FAERS Safety Report 9071370 (Version 1)
Quarter: 2013Q1

REPORT INFORMATION
  Report Type: Report from Study
  Country: US (occurrence: US)
  Receive Date: 20130129
  Receipt Date: 20130129
  Transmission Date: 20140127
  Serious: No
  Sender: FDA-Public Use
  Company Number: US-ABBOTT-12P-163-0924690-00

PATIENT
  Sex: Female
  Weight: 108.96 kg

DRUGS (5)
  1. HUMIRA 40 MG/0.8 ML PEN [Suspect]
     Indication: PSORIATIC ARTHROPATHY
     Route: 058
     Dates: start: 20120209, end: 20120209
  2. HUMIRA 40 MG/0.8 ML PEN [Suspect]
     Route: 058
     Dates: start: 20120328
  3. METROPDOSE PACK [Concomitant]
     Indication: PSORIATIC ARTHROPATHY
     Dosage: MONTHLY
     Dates: start: 2009
  4. METHOTREXATE [Concomitant]
     Indication: PSORIATIC ARTHROPATHY
     Dosage: SIX 2.5MG TABS WEEKLY
     Route: 048
     Dates: end: 201203
  5. METHOTREXATE [Concomitant]
     Dosage: EIGHT 2.5MG TABLETS WEEKLY
     Route: 048
     Dates: start: 201203

REACTIONS (2)
  - Condition aggravated [Recovering/Resolving]
  - Furuncle [Recovered/Resolved]
